FAERS Safety Report 6801606-2 (Version None)
Quarter: 2010Q2

REPORT INFORMATION
  Report Type: 
  Country: None (occurrence: None)
  Receive Date: 20100629
  Receipt Date: 20100624
  Transmission Date: 20101027
  Serious: Yes (Death, Other)
  Sender: FDA-Public Use
  Company Number: GR-SANOFI-AVENTIS-2010SA036818

PATIENT

DRUGS (5)
  1. TAXOTERE [Suspect]
  2. CISPLATIN [Suspect]
  3. CETUXIMAB [Suspect]
  4. CETUXIMAB [Suspect]
  5. CAPECITABINE [Concomitant]
     Route: 048

REACTIONS (10)
  - DERMATITIS ACNEIFORM [None]
  - DISEASE PROGRESSION [None]
  - FUNGAL INFECTION [None]
  - LARYNGEAL OEDEMA [None]
  - METASTASES TO LUNG [None]
  - MUCOSAL INFLAMMATION [None]
  - MYOCARDIAL INFARCTION [None]
  - PNEUMONIA [None]
  - TRISMUS [None]
  - UTERINE CERVIX STENOSIS [None]
